FAERS Safety Report 10070198 (Version 2)
Quarter: 2014Q2

REPORT INFORMATION
  Report Type: Spontaneous
  Country: IT (occurrence: None)
  Receive Date: 20140408
  Receipt Date: 20140415
  Transmission Date: 20141212
  Serious: Yes (Other)
  Sender: FDA-Public Use
  Company Number: FK201401179

PATIENT
  Age: 66 Year
  Sex: Male

DRUGS (3)
  1. IRINOTECAN [Suspect]
     Indication: RECTAL CANCER STAGE IV
     Dosage: 120 MG/MQ, INTRAVENOUS (NOT OTHERWISE SPECIFIED)
     Route: 042
     Dates: start: 20131202, end: 20140317
  2. OXALIPLATIN [Suspect]
     Indication: COLON CANCER
     Dosage: INTRAVENOUS (NOT OTHERWISE SPECIFIED)
     Route: 042
     Dates: start: 20131202, end: 20140303
  3. ERBITUX [Suspect]
     Indication: COLON CANCER
     Dosage: 250 MG/MQ, INTRAVENOUS (NOT OTHERWISE SPECIFICED)
     Route: 042
     Dates: start: 20131202, end: 20140324

REACTIONS (1)
  - Atrial fibrillation [None]
